FAERS Safety Report 16782586 (Version 11)
Quarter: 2020Q3

REPORT INFORMATION
  Report Type: Report from Study
  Country: US (occurrence: US)
  Receive Date: 20190906
  Receipt Date: 20200813
  Transmission Date: 20201102
  Serious: Yes (Hospitalization, Other)
  Sender: FDA-Public Use
  Company Number: US-ACTELION-A-NJ2019-192544

PATIENT
  Age: 86 Year
  Sex: Female
  Weight: 63.49 kg

DRUGS (3)
  1. OPSUMIT [Suspect]
     Active Substance: MACITENTAN
     Indication: PULMONARY ARTERIAL HYPERTENSION
     Dosage: 10 MG, QD
     Route: 048
     Dates: start: 201905
  2. ADCIRCA [Suspect]
     Active Substance: TADALAFIL
     Indication: PRODUCT USED FOR UNKNOWN INDICATION
     Dosage: 20 MG, QD
     Route: 065
     Dates: start: 20191207
  3. NORCO [Suspect]
     Active Substance: ACETAMINOPHEN\HYDROCODONE BITARTRATE
     Indication: PRODUCT USED FOR UNKNOWN INDICATION
     Dosage: UNK
     Route: 065
     Dates: start: 201905

REACTIONS (27)
  - Fall [Unknown]
  - Ear discomfort [Unknown]
  - Dyspnoea exertional [Unknown]
  - Pulmonary hypertension [Unknown]
  - Malaise [Unknown]
  - Sinusitis [Unknown]
  - Head discomfort [Not Recovered/Not Resolved]
  - Cardiomegaly [Not Recovered/Not Resolved]
  - Stress [Unknown]
  - Palpitations [Recovered/Resolved]
  - Spinal column injury [Unknown]
  - Nausea [Unknown]
  - Weight decreased [Unknown]
  - Paraesthesia [Unknown]
  - Dizziness postural [Unknown]
  - Scleroderma [Unknown]
  - Pelvic fracture [Unknown]
  - Alopecia [Unknown]
  - Trichorrhexis [Unknown]
  - Condition aggravated [Unknown]
  - Sinus congestion [Unknown]
  - Pneumonia [Unknown]
  - Depressed mood [Unknown]
  - Tinnitus [Recovered/Resolved]
  - Connective tissue disorder [Unknown]
  - Asthenia [Unknown]
  - Seasonal allergy [Not Recovered/Not Resolved]

NARRATIVE: CASE EVENT DATE: 201907
